FAERS Safety Report 6483644-5 (Version None)
Quarter: 2009Q4

REPORT INFORMATION
  Report Type: 
  Country: None (occurrence: None)
  Receive Date: 20091209
  Receipt Date: 20091125
  Transmission Date: 20100525
  Serious: Yes (Hospitalization, Other)
  Sender: FDA-Public Use
  Company Number: PHHY2009JP50164

PATIENT
  Age: 77 Year
  Sex: Male

DRUGS (5)
  1. PARLODEL [Suspect]
     Indication: PARKINSONISM
     Dosage: UNK
     Route: 048
     Dates: start: 19930101, end: 19930101
  2. CARBIDOPA AND LEVODOPA [Concomitant]
     Dosage: 500 MG
  3. ANTI-PARKINSON DRUGS [Concomitant]
     Indication: PARKINSONISM
     Route: 065
  4. ROPINIROLE [Concomitant]
     Dosage: 6 MG
     Route: 065
  5. SELEGILINE HYDROCHLORIDE [Concomitant]
     Route: 065

REACTIONS (20)
  - APRAXIA [None]
  - BLEPHAROSPASM [None]
  - BRADYKINESIA [None]
  - CONSTIPATION [None]
  - DISEASE PROGRESSION [None]
  - DIZZINESS POSTURAL [None]
  - DYSARTHRIA [None]
  - DYSPHAGIA [None]
  - DYSURIA [None]
  - GAIT DISTURBANCE [None]
  - INCONTINENCE [None]
  - MASKED FACIES [None]
  - MEIGE'S SYNDROME [None]
  - MUSCLE RIGIDITY [None]
  - PARKINSONIAN GAIT [None]
  - PARKINSONISM [None]
  - PNEUMONIA ASPIRATION [None]
  - PROGRESSIVE SUPRANUCLEAR PALSY [None]
  - REFLEXES ABNORMAL [None]
  - VISUAL IMPAIRMENT [None]
